FAERS Safety Report 10610579 (Version 1)
Quarter: 2014Q4

REPORT INFORMATION
  Report Type: Spontaneous
  Country: FR (occurrence: None)
  Receive Date: 20141124
  Receipt Date: 20141124
  Transmission Date: 20150529
  Serious: Yes (Hospitalization)
  Sender: FDA-Public Use
  Company Number: FR2014GSK020383

PATIENT
  Age: 68 Year
  Sex: Male

DRUGS (3)
  1. RALTEGRAVIR [Concomitant]
     Active Substance: RALTEGRAVIR
  2. KIVEXA [Concomitant]
     Active Substance: ABACAVIR SULFATE\LAMIVUDINE
  3. MARAVIROC [Suspect]
     Active Substance: MARAVIROC
     Indication: HIV INFECTION
     Dates: start: 20140517

REACTIONS (4)
  - Malnutrition [None]
  - Oedema [None]
  - General physical health deterioration [None]
  - Dyspnoea [None]

NARRATIVE: CASE EVENT DATE: 20141106
